FAERS Safety Report 5712296-4 (Version None)
Quarter: 2008Q2

REPORT INFORMATION
  Report Type: 
  Country: None (occurrence: None)
  Receive Date: 20080421
  Receipt Date: 20080421
  Transmission Date: 20081010
  Serious: No
  Sender: FDA-Public Use
  Company Number: None

PATIENT
  Age: 51 Year
  Sex: Female
  Weight: 48.9885 kg

DRUGS (1)
  1. CIPROFLOXACN  500 MG TAB  BAYER [Suspect]
     Indication: DIVERTICULITIS
     Dosage: 1 TAB 2X'S/DAY PO
     Route: 048
     Dates: start: 20080402, end: 20080412

REACTIONS (7)
  - ARTHROPATHY [None]
  - BACK DISORDER [None]
  - CONDITION AGGRAVATED [None]
  - MENOPAUSE [None]
  - MUSCULOSKELETAL STIFFNESS [None]
  - NAUSEA [None]
  - TENDON DISORDER [None]
